FAERS Safety Report 21522150 (Version 1)
Quarter: 2022Q4

REPORT INFORMATION
  Report Type: Spontaneous
  Country: AU (occurrence: AU)
  Receive Date: 20221028
  Receipt Date: 20221028
  Transmission Date: 20230113
  Serious: Yes (Hospitalization, Other)
  Sender: FDA-Public Use
  Company Number: AU-KARYOPHARM THERAPEUTICS, INC.-2022KPT001064

PATIENT

DRUGS (7)
  1. XPOVIO [Suspect]
     Active Substance: SELINEXOR
     Indication: Plasma cell myeloma
     Dosage: UNK
     Route: 048
     Dates: start: 20220830
  2. DEXAMETHASONE [Concomitant]
     Active Substance: DEXAMETHASONE
     Dosage: 20 MG, WEEKLY
  3. DEXAMETHASONE [Concomitant]
     Active Substance: DEXAMETHASONE
     Dosage: 20 MG, WEEKLY
  4. POMALIDOMIDE [Concomitant]
     Active Substance: POMALIDOMIDE
  5. DARATUMUMAB [Concomitant]
     Active Substance: DARATUMUMAB
  6. RITUXIMAB [Concomitant]
     Active Substance: RITUXIMAB
  7. GRANULOCYTE COLONY-STIMULATING FACTOR NOS [Concomitant]
     Active Substance: GRANULOCYTE COLONY-STIMULATING FACTOR NOS

REACTIONS (11)
  - Pulmonary embolism [Unknown]
  - Fatigue [Recovering/Resolving]
  - Lower respiratory tract infection [Unknown]
  - Abdominal discomfort [Unknown]
  - Reflux gastritis [Unknown]
  - Diarrhoea [Unknown]
  - Neutropenia [Unknown]
  - Decreased appetite [Recovering/Resolving]
  - Weight decreased [Unknown]
  - Confusional state [Unknown]
  - Dizziness [Unknown]

NARRATIVE: CASE EVENT DATE: 20220101
